FAERS Safety Report 9339467 (Version 2)
Quarter: 2014Q1

REPORT INFORMATION
  Report Type: Spontaneous
  Country: FR (occurrence: FR)
  Receive Date: 20130610
  Receipt Date: 20140102
  Transmission Date: 20141002
  Serious: Yes (Death, Hospitalization)
  Sender: FDA-Public Use
  Company Number: FR-BAXTER-2013BAX020568

PATIENT
  Age: 86 Year
  Sex: Male

DRUGS (7)
  1. ENDOXAN 2000 MG, LYOPHILISAT POUR SOLUTION INJECTABLE [Suspect]
     Indication: B-CELL LYMPHOMA
     Route: 042
     Dates: end: 20130123
  2. DOXORUBICINE CHLORHYDRATE [Suspect]
     Indication: B-CELL LYMPHOMA
     Route: 042
     Dates: end: 20130123
  3. ETOPOSIDE [Suspect]
     Indication: B-CELL LYMPHOMA
     Route: 042
     Dates: end: 20130123
  4. INEXIUM [Concomitant]
     Indication: PRODUCT USED FOR UNKNOWN INDICATION
     Route: 048
  5. INNOHEP [Concomitant]
     Indication: PRODUCT USED FOR UNKNOWN INDICATION
     Route: 048
  6. LOSARTAN POTASSIUM [Concomitant]
     Indication: PRODUCT USED FOR UNKNOWN INDICATION
     Route: 048
  7. HYDROXYZINE HYDROCHLORIDE [Concomitant]
     Indication: PRODUCT USED FOR UNKNOWN INDICATION
     Route: 048

REACTIONS (3)
  - Scleroderma [Recovered/Resolved]
  - Death [Fatal]
  - Pneumocystis jirovecii infection [Unknown]
